FAERS Safety Report 5707697-4 (Version None)
Quarter: 2008Q2

REPORT INFORMATION
  Report Type: 
  Country: None (occurrence: None)
  Receive Date: 20080415
  Receipt Date: 20080407
  Transmission Date: 20081010
  Serious: Yes (Death)
  Sender: FDA-Public Use
  Company Number: 163-21880-08040542

PATIENT
  Age: 82 Year
  Sex: Male

DRUGS (2)
  1. REVLIMID [Suspect]
     Indication: MULTIPLE MYELOMA
     Dosage: 25 MG, X21 DAYS EVERY 28 DAYS,  ORAL; X21 DAYS EVERY 28 DAYS, ORAL
     Route: 048
     Dates: start: 20061222, end: 20070701
  2. REVLIMID [Suspect]
     Indication: MULTIPLE MYELOMA
     Dosage: 25 MG, X21 DAYS EVERY 28 DAYS,  ORAL; X21 DAYS EVERY 28 DAYS, ORAL
     Route: 048
     Dates: start: 20080220, end: 20080222

REACTIONS (1)
  - DEATH [None]
